FAERS Safety Report 20141093 (Version 2)
Quarter: 2021Q4

REPORT INFORMATION
  Report Type: Spontaneous
  Country: AT (occurrence: AT)
  Receive Date: 20211202
  Receipt Date: 20211223
  Transmission Date: 20220303
  Serious: Yes (Death, Hospitalization, Disabling, Other)
  Sender: FDA-Public Use
  Company Number: AT-009507513-2112AUT000267

PATIENT
  Sex: Male

DRUGS (1)
  1. KEYTRUDA [Suspect]
     Active Substance: PEMBROLIZUMAB
     Indication: Skin cancer metastatic
     Dosage: UNK
     Dates: start: 202104

REACTIONS (6)
  - Multiple organ dysfunction syndrome [Fatal]
  - Herpes ophthalmic [Unknown]
  - Rash [Unknown]
  - Visual impairment [Unknown]
  - Adverse event [Unknown]
  - Urinary tract infection [Unknown]

NARRATIVE: CASE EVENT DATE: 20210101
